FAERS Safety Report 20340793 (Version 1)
Quarter: 2022Q1

REPORT INFORMATION
  Report Type: Report from Study
  Country: US (occurrence: US)
  Receive Date: 20220117
  Receipt Date: 20220117
  Transmission Date: 20220423
  Serious: Yes (Other)
  Sender: FDA-Public Use
  Company Number: US-JAZZ-2021-US-023704

PATIENT
  Sex: Male

DRUGS (4)
  1. XYREM [Suspect]
     Active Substance: SODIUM OXYBATE
     Indication: Narcolepsy
     Dosage: 2.25 MILLIGRAM, BID BY MOUTH DILUTED IN 60 ML OF WATER AT BEDTIME AND REPEAT 2+1/2 TO 4 HOURS LATER
     Route: 048
     Dates: start: 201904, end: 201904
  2. XYREM [Suspect]
     Active Substance: SODIUM OXYBATE
     Indication: Cataplexy
     Dosage: 4.5 MILLIGRAM, BID BY MOUTH DILUTED IN 60ML OF WATER AT BEDTIME AND REPEAT 2+1/2 TO 4 HOURS LATER
     Route: 048
     Dates: start: 201905
  3. XYREM [Suspect]
     Active Substance: SODIUM OXYBATE
     Indication: Somnolence
  4. AZELASTINE [Concomitant]
     Active Substance: AZELASTINE
     Dosage: UNK
     Dates: start: 20200301

REACTIONS (1)
  - Surgery [Unknown]
